FAERS Safety Report 4322794-6 (Version None)
Quarter: 2004Q1

REPORT INFORMATION
  Report Type: 
  Country: None (occurrence: None)
  Receive Date: 20040324
  Receipt Date: 20040316
  Transmission Date: 20041129
  Serious: Yes (Other)
  Sender: FDA-Public Use
  Company Number: US-ROCHE-361938

PATIENT
  Sex: Female

DRUGS (2)
  1. VERSED [Suspect]
     Indication: COLONOSCOPY
     Route: 065
  2. DEMEROL [Suspect]
     Indication: COLONOSCOPY
     Route: 065

REACTIONS (2)
  - COLECTOMY [None]
  - HAEMORRHAGE [None]
